FAERS Safety Report 10096586 (Version 2)
Quarter: 2015Q1

REPORT INFORMATION
  Report Type: Spontaneous
  Country: US (occurrence: US)
  Receive Date: 20140422
  Receipt Date: 20150120
  Transmission Date: 20150720
  Serious: Yes (Hospitalization, Other)
  Sender: FDA-Public Use
  Company Number: US-BAYER-2014-057725

PATIENT
  Age: 27 Year
  Sex: Female
  Weight: 158.73 kg

DRUGS (1)
  1. YAZ [Suspect]
     Active Substance: DROSPIRENONE\ETHINYL ESTRADIOL
     Dosage: UNK
     Route: 048
     Dates: start: 2004

REACTIONS (10)
  - Weight increased [None]
  - Pain [Recovered/Resolved]
  - Pain [None]
  - Deep vein thrombosis [None]
  - Impaired work ability [None]
  - Injury [Recovered/Resolved]
  - Malaise [Recovered/Resolved]
  - Cerebrovascular accident [None]
  - Thrombosis [None]
  - Pulmonary embolism [Recovered/Resolved]

NARRATIVE: CASE EVENT DATE: 2005
